FAERS Safety Report 5424966-6 (Version None)
Quarter: 2007Q3

REPORT INFORMATION
  Report Type: 
  Country: None (occurrence: None)
  Receive Date: 20070824
  Receipt Date: 20070821
  Transmission Date: 20080115
  Serious: Yes (Other)
  Sender: FDA-Public Use
  Company Number: B0462193A

PATIENT

DRUGS (2)
  1. ZYBAN [Suspect]
     Indication: DRUG USE FOR UNKNOWN INDICATION
  2. SSRI [Concomitant]
     Indication: ANXIETY

REACTIONS (7)
  - ANXIETY [None]
  - DISORIENTATION [None]
  - FEELING ABNORMAL [None]
  - HEAD DISCOMFORT [None]
  - MUSCLE INJURY [None]
  - VERTIGO [None]
  - WEIGHT DECREASED [None]
